FAERS Safety Report 12285974 (Version 1)
Quarter: 2016Q2

REPORT INFORMATION
  Report Type: Spontaneous
  Country: US (occurrence: None)
  Receive Date: 20160419
  Receipt Date: 20160419
  Transmission Date: 20160815
  Serious: No
  Sender: FDA-Public Use
  Company Number: None

PATIENT
  Age: 57 Year
  Sex: Male

DRUGS (1)
  1. SUTENT [Suspect]
     Active Substance: SUNITINIB MALATE
     Indication: CROHN^S DISEASE
     Dosage: 1 CAPSULE QD PO
     Route: 048
     Dates: start: 20160322

REACTIONS (1)
  - Hypertension [None]

NARRATIVE: CASE EVENT DATE: 201603
